FAERS Safety Report 5519230-0 (Version None)
Quarter: 2007Q4

REPORT INFORMATION
  Report Type: 
  Country: None (occurrence: None)
  Receive Date: 20071116
  Receipt Date: 20071105
  Transmission Date: 20080405
  Serious: Yes (Death, Hospitalization)
  Sender: FDA-Public Use
  Company Number: PL-KINGPHARMUSA00001-K200701430

PATIENT

DRUGS (3)
  1. TAPAZOLE [Suspect]
     Indication: HYPERTHYROIDISM
     Dosage: UNK, UNK
  2. TAPAZOLE [Suspect]
     Dosage: 60 MG, QD
     Dates: start: 20060101, end: 20060101
  3. THIOURACIL [Concomitant]
     Indication: HYPERTHYROIDISM

REACTIONS (7)
  - ABDOMINAL PAIN [None]
  - HEPATIC FAILURE [None]
  - JAUNDICE [None]
  - NAUSEA [None]
  - PRURITUS [None]
  - RENAL FAILURE [None]
  - VOMITING [None]
